FAERS Safety Report 16901418 (Version 1)
Quarter: 2019Q4

REPORT INFORMATION
  Report Type: Spontaneous
  Country: GB (occurrence: GB)
  Receive Date: 20191009
  Receipt Date: 20191009
  Transmission Date: 20200122
  Serious: Yes (Other)
  Sender: FDA-Public Use
  Company Number: GB-TEVA-2019-GB-1117664

PATIENT
  Age: 76 Year
  Sex: Female
  Weight: 85 kg

DRUGS (6)
  1. PERINDOPRIL TERT-BUTYLAMINE [Suspect]
     Active Substance: PERINDOPRIL ERBUMINE
     Indication: HYPERTENSION
     Dosage: 4 MG
     Route: 048
     Dates: start: 20190819, end: 20190909
  2. ESTRIOL [Concomitant]
     Active Substance: ESTRIOL
  3. INDAPAMIDE. [Suspect]
     Active Substance: INDAPAMIDE
     Indication: HYPERTENSION
     Dosage: 2.5 MG
     Route: 048
     Dates: start: 20190819, end: 20190909
  4. CLENIL MODULITE [Concomitant]
     Active Substance: BECLOMETHASONE DIPROPIONATE
     Route: 055
  5. SALBUTAMOL [Concomitant]
     Active Substance: ALBUTEROL
     Route: 055
  6. PRAVASTATIN. [Concomitant]
     Active Substance: PRAVASTATIN
     Dosage: 10 MG

REACTIONS (1)
  - Angioedema [Recovered/Resolved]

NARRATIVE: CASE EVENT DATE: 20190908
